FAERS Safety Report 7518095-5 (Version None)
Quarter: 2011Q2

REPORT INFORMATION
  Report Type: 
  Country: None (occurrence: None)
  Receive Date: 20110531
  Receipt Date: 20110531
  Transmission Date: 20111010
  Serious: No
  Sender: FDA-Public Use
  Company Number: None

PATIENT
  Sex: Female

DRUGS (1)
  1. REVATIO [Suspect]
     Dosage: 20MG TID PO
     Route: 048
     Dates: start: 20101101, end: 20110524

REACTIONS (2)
  - INSOMNIA [None]
  - PAIN IN EXTREMITY [None]
